FAERS Safety Report 24073265 (Version 1)
Quarter: 2024Q3

REPORT INFORMATION
  Report Type: Report from Study
  Country: FR (occurrence: FR)
  Receive Date: 20240710
  Receipt Date: 20240710
  Transmission Date: 20241016
  Serious: Yes (Other)
  Sender: NOVARTIS
  Company Number: FR-002147023-NVSC2024FR019001

PATIENT
  Sex: Female

DRUGS (2)
  1. MEKINIST [Suspect]
     Active Substance: TRAMETINIB DIMETHYL SULFOXIDE
     Indication: Glioma
     Dosage: 0.9 MG, QD
     Route: 048
     Dates: start: 20201019, end: 20231023
  2. MEKINIST [Suspect]
     Active Substance: TRAMETINIB DIMETHYL SULFOXIDE
     Indication: BRAF gene mutation
     Dosage: 0.75 MG, QD
     Route: 048
     Dates: start: 20231023

REACTIONS (12)
  - Glioma [Unknown]
  - Malignant neoplasm progression [Unknown]
  - Diarrhoea [Unknown]
  - Abdominal pain [Unknown]
  - Gastrointestinal toxicity [Unknown]
  - Angular cheilitis [Unknown]
  - Lip dry [Unknown]
  - Mucosal toxicity [Unknown]
  - Fatigue [Unknown]
  - Dermatitis acneiform [Unknown]
  - Paronychia [Unknown]
  - Drug ineffective [Unknown]

NARRATIVE: CASE EVENT DATE: 20240327
